FAERS Safety Report 12220047 (Version 2)
Quarter: 2016Q2

REPORT INFORMATION
  Report Type: Spontaneous
  Country: FI (occurrence: FI)
  Receive Date: 20160330
  Receipt Date: 20160627
  Transmission Date: 20160815
  Serious: Yes (Hospitalization)
  Sender: FDA-Public Use
  Company Number: FI-ROCHE-1692658

PATIENT
  Age: 56 Year
  Sex: Female
  Weight: 88 kg

DRUGS (23)
  1. ARCOXIA [Concomitant]
     Active Substance: ETORICOXIB
     Dosage: AS NEEDED, NOT MORE THAN 1 TABLET A DAY
     Route: 048
  2. PREDNISON [Concomitant]
     Active Substance: PREDNISONE
     Route: 048
  3. ARAVA [Concomitant]
     Active Substance: LEFLUNOMIDE
     Route: 048
  4. OXIKLORIN [Concomitant]
     Active Substance: HYDROXYCHLOROQUINE SULFATE
     Route: 048
     Dates: start: 20150302
  5. PANADOL FORTE [Concomitant]
     Active Substance: ACETAMINOPHEN\CAFFEINE
     Indication: PAIN
     Dosage: AS NEEDED 1 TABLET, NOT MORE THAN 3 TABLETS A DAY
     Route: 048
  6. ROACTEMRA [Suspect]
     Active Substance: TOCILIZUMAB
     Indication: RHEUMATOID ARTHRITIS
     Route: 058
     Dates: start: 201411, end: 20150204
  7. ONDANSETRON STADA [Concomitant]
     Dosage: AS NEEDED ONE TABLET, NOT MORE THAN 12 MG PER DAY.
     Route: 048
  8. SOMAC [Concomitant]
     Active Substance: PANTOPRAZOLE SODIUM
     Route: 048
  9. SOLOMET [Concomitant]
     Dosage: INJECTED 1 ML
     Route: 065
     Dates: start: 20150127
  10. TRAMAL RETARD [Concomitant]
     Active Substance: TRAMADOL
     Indication: PAIN
     Route: 065
     Dates: start: 201502, end: 20150302
  11. TRAMAL RETARD [Concomitant]
     Active Substance: TRAMADOL
     Route: 048
     Dates: start: 20150302
  12. PREDNISON [Concomitant]
     Active Substance: PREDNISONE
     Route: 048
  13. SERETIDE [Concomitant]
     Active Substance: FLUTICASONE PROPIONATE\SALMETEROL XINAFOATE
     Dosage: DOSE: 50/250 MCG
     Route: 055
  14. LEDERSPAN [Concomitant]
     Active Substance: TRIAMCINOLONE HEXACETONIDE
     Dosage: 2 ML
     Route: 065
     Dates: start: 20150127
  15. VENTOLINE [Concomitant]
     Active Substance: ALBUTEROL
     Dosage: AS NEEDED ONE DOS, NOT MORE THAN 6 DOSE A DAY
     Route: 055
  16. THYROXIN [Concomitant]
     Active Substance: LEVOTHYROXINE
     Route: 048
  17. KLEXANE [Concomitant]
     Active Substance: ENOXAPARIN
     Dosage: INDICATION: THROMBI PROPHYLAXIS
     Route: 065
     Dates: start: 20150202, end: 20150302
  18. CORTISONE [Concomitant]
     Active Substance: CORTISONE\HYDROCORTISONE
     Route: 014
     Dates: start: 20150127
  19. PREDNISON [Concomitant]
     Active Substance: PREDNISONE
     Route: 048
  20. NORITREN [Concomitant]
     Active Substance: NORTRIPTYLINE HYDROCHLORIDE
     Route: 048
  21. TRAMAL [Concomitant]
     Active Substance: TRAMADOL
     Dosage: AS NEEDED
     Route: 048
  22. NAPROMEX [Concomitant]
     Dosage: AS NEEDED 1 TABLET, NOT MORE THAN 2 TABLETS A DAY
     Route: 048
  23. SCHERIPROCT NEO [Concomitant]
     Indication: HAEMORRHOIDS
     Dosage: DOSE: 1.5/5 MG/G. AS NEEDED ONE DOS
     Route: 054

REACTIONS (4)
  - Influenza [Recovering/Resolving]
  - Arthritis bacterial [Recovered/Resolved]
  - Staphylococcal sepsis [Recovered/Resolved]
  - Synovial cyst [Unknown]

NARRATIVE: CASE EVENT DATE: 20150131
